FAERS Safety Report 10182911 (Version 2)
Quarter: 2014Q3

REPORT INFORMATION
  Report Type: Spontaneous
  Country: GB (occurrence: None)
  Receive Date: 20140516
  Receipt Date: 20140815
  Transmission Date: 20150326
  Serious: Yes (Hospitalization, Other)
  Sender: FDA-Public Use
  Company Number: AUR-APL-2014-05618

PATIENT
  Age: 67 Year
  Sex: Male
  Weight: 62 kg

DRUGS (8)
  1. RIBAVIRIN. [Suspect]
     Active Substance: RIBAVIRIN
     Indication: HEPATITIS C
     Dates: start: 20140122, end: 20140323
  2. DOMPERIDONE [Concomitant]
     Active Substance: DOMPERIDONE
  3. INCIVO [Suspect]
     Active Substance: TELAPREVIR
     Indication: HEPATITIS C
     Dosage: 1125 MG 3 IN 1 D
     Route: 048
     Dates: start: 20140124, end: 20140318
  4. EFAVIRENZ [Concomitant]
     Active Substance: EFAVIRENZ
  5. LOPERAMIDE [Concomitant]
     Active Substance: LOPERAMIDE
  6. ANBESOL (CETYLPYRIDINIUM CHLORIDE, CHLOROCRESOL, LIDOCAINE HYDROCHLORIDE) [Concomitant]
  7. TRUVADA [Concomitant]
     Active Substance: EMTRICITABINE\TENOFOVIR DISOPROXIL FUMARATE
  8. PEGINTERFERON ALFA-2B (PEGINTERFERON ALFA-2B) [Suspect]
     Active Substance: PEGINTERFERON ALFA-2B
     Indication: HEPATITIS C
     Dates: start: 20140122, end: 20140711

REACTIONS (4)
  - Rash [None]
  - Skin lesion [None]
  - Periorbital oedema [None]
  - Anal abscess [None]

NARRATIVE: CASE EVENT DATE: 20140318
